FAERS Safety Report 20920892 (Version 1)
Quarter: 2022Q2

REPORT INFORMATION
  Report Type: Spontaneous
  Country: JP (occurrence: JP)
  Receive Date: 20220606
  Receipt Date: 20220606
  Transmission Date: 20220721
  Serious: Yes (Other)
  Sender: FDA-Public Use
  Company Number: JP-TAIHO-TT220173_P_1

PATIENT
  Age: 60 Year
  Sex: Male

DRUGS (4)
  1. UFT [Suspect]
     Active Substance: TEGAFUR\URACIL
     Indication: Colorectal cancer recurrent
     Dosage: DETAILS NOT REPORTED
     Route: 048
  2. LEUCOVORIN CALCIUM [Suspect]
     Active Substance: LEUCOVORIN CALCIUM
     Indication: Colorectal cancer recurrent
     Dosage: DETAILS NOT REPORTED
     Route: 048
  3. LONSURF [Suspect]
     Active Substance: TIPIRACIL HYDROCHLORIDE\TRIFLURIDINE
     Indication: Colorectal cancer recurrent
     Dosage: DETAILS NOT REPORTED
     Route: 048
  4. STIVARGA [Concomitant]
     Active Substance: REGORAFENIB
     Indication: Colorectal cancer recurrent
     Dosage: DETAILS NOT REPORTED
     Route: 048

REACTIONS (2)
  - Cerebral haemorrhage [Unknown]
  - General physical health deterioration [Unknown]
